FAERS Safety Report 6336423-3 (Version None)
Quarter: 2009Q3

REPORT INFORMATION
  Report Type: 
  Country: None (occurrence: None)
  Receive Date: 20090901
  Receipt Date: 20090821
  Transmission Date: 20100115
  Serious: Yes (Other)
  Sender: FDA-Public Use
  Company Number: US-BAYER-200913283BCC

PATIENT
  Age: 61 Year
  Sex: Female
  Weight: 57 kg

DRUGS (9)
  1. ALEVE (CAPLET) [Suspect]
     Indication: BACK PAIN
     Dosage: TOTAL DAILY DOSE: 220 MG  UNIT DOSE: 220 MG
     Route: 048
     Dates: end: 20090819
  2. KLONOPIN [Concomitant]
  3. PROZAC [Concomitant]
  4. MEDROXYPROGESTERONE [Concomitant]
  5. LEVOXYL [Concomitant]
  6. FOLIC ACID [Concomitant]
  7. FOGORD [Concomitant]
  8. ESTRADIOL [Concomitant]
  9. TEGRETOL [Concomitant]

REACTIONS (4)
  - BLOOD CREATINE INCREASED [None]
  - GLOMERULAR FILTRATION RATE DECREASED [None]
  - RED BLOOD CELL COUNT DECREASED [None]
  - WHITE BLOOD CELL COUNT DECREASED [None]
